FAERS Safety Report 13331568 (Version 1)
Quarter: 2017Q1

REPORT INFORMATION
  Report Type: Spontaneous
  Country: US (occurrence: US)
  Receive Date: 20170314
  Receipt Date: 20170314
  Transmission Date: 20170428
  Serious: No
  Sender: FDA-Public Use
  Company Number: US-JNJFOC-20161226948

PATIENT
  Sex: Male

DRUGS (1)
  1. TYLENOL EXTRA STRENGTH [Suspect]
     Active Substance: ACETAMINOPHEN
     Indication: MUSCULOSKELETAL CHEST PAIN
     Dosage: 1 CAPLET, EVERY 3 HOURS
     Route: 048

REACTIONS (3)
  - Extra dose administered [Unknown]
  - Expired product administered [Unknown]
  - Inappropriate schedule of drug administration [Unknown]
